FAERS Safety Report 7391376-4 (Version None)
Quarter: 2011Q2

REPORT INFORMATION
  Report Type: 
  Country: None (occurrence: None)
  Receive Date: 20110404
  Receipt Date: 20110307
  Transmission Date: 20111010
  Serious: No
  Sender: FDA-Public Use
  Company Number: US-B.I. PHARMACEUTICALS,INC./RIDGEFIELD-2011-BP-07800BP

PATIENT
  Age: 72 Year
  Sex: Male

DRUGS (1)
  1. PRADAXA [Suspect]
     Dosage: 150 MG

REACTIONS (4)
  - OEDEMA PERIPHERAL [None]
  - FLANK PAIN [None]
  - BLOOD URINE PRESENT [None]
  - CREATININE RENAL CLEARANCE INCREASED [None]
